FAERS Safety Report 7750561-X (Version None)
Quarter: 2011Q3

REPORT INFORMATION
  Report Type: 
  Country: None (occurrence: None)
  Receive Date: 20110914
  Receipt Date: 20110907
  Transmission Date: 20111222
  Serious: Yes (Disabling)
  Sender: FDA-Public Use
  Company Number: US-MERCK-1107USA02769

PATIENT
  Age: 5 Year
  Sex: Female
  Weight: 20 kg

DRUGS (2)
  1. SINGULAIR [Suspect]
     Indication: RHINITIS ALLERGIC
     Route: 048
     Dates: start: 20110418, end: 20110717
  2. SINGULAIR [Suspect]
     Indication: SEASONAL ALLERGY
     Route: 048
     Dates: start: 20110418, end: 20110717

REACTIONS (3)
  - MUSCLE TWITCHING [None]
  - RHINORRHOEA [None]
  - DYSKINESIA [None]
